FAERS Safety Report 7928494-5 (Version None)
Quarter: 2011Q4

REPORT INFORMATION
  Report Type: 
  Country: None (occurrence: None)
  Receive Date: 20111118
  Receipt Date: 20111116
  Transmission Date: 20120403
  Serious: Yes (Other)
  Sender: FDA-Public Use
  Company Number: PHHY2011NL81174

PATIENT
  Age: 80 Year
  Sex: Male

DRUGS (2)
  1. SPIRIVA [Concomitant]
  2. ONBREZ [Suspect]
     Dosage: 150 UG, UNK

REACTIONS (2)
  - CHEST DISCOMFORT [None]
  - CARDIAC VALVE DISEASE [None]
